FAERS Safety Report 4437824-0 (Version None)
Quarter: 2004Q3

REPORT INFORMATION
  Report Type: 
  Country: None (occurrence: None)
  Receive Date: 20040831
  Receipt Date: 20040820
  Transmission Date: 20050211
  Serious: Yes (Other)
  Sender: FDA-Public Use
  Company Number: GB-JNJFOC-20040806637

PATIENT
  Age: 15 Year
  Sex: Female
  Weight: 55 kg

DRUGS (2)
  1. CONCERTA [Suspect]
     Route: 049
  2. CONCERTA [Suspect]
     Route: 049

REACTIONS (1)
  - PHOBIA [None]
